FAERS Safety Report 8768168 (Version 1)
Quarter: 2012Q4

REPORT INFORMATION
  Report Type: 
  Country: US (occurrence: US)
  Receive Date: 20120904
  Receipt Date: 20120904
  Transmission Date: 20130627
  Serious: Yes (Death, Hospitalization, Disabling, Other)
  Sender: FDA-Public Use
  Company Number: US-009507513-1111USA01295

PATIENT

DRUGS (7)
  1. FOSAMAX [Suspect]
     Indication: OSTEOPOROSIS
     Dosage: 10 mg, qd
     Route: 048
     Dates: start: 19991015
  2. FOSAMAX [Suspect]
     Indication: OSTEOPOROSIS PROPHYLAXIS
     Dosage: 70 mg, QW
     Route: 048
     Dates: start: 20001215, end: 2009
  3. FOSAMAX [Suspect]
     Indication: OSTEOPOROSIS
     Dosage: 70 mg, UNK
     Route: 048
     Dates: start: 1999, end: 2009
  4. FOSAMAX [Suspect]
     Dosage: UNK
     Route: 048
     Dates: start: 20080409, end: 20080714
  5. ALENDRONATE SODIUM [Suspect]
     Dosage: UNK
     Route: 048
     Dates: start: 20081120, end: 20100304
  6. CALCIUM (UNSPECIFIED) [Concomitant]
     Route: 048
  7. MK-9278 [Concomitant]
     Route: 048

REACTIONS (75)
  - Cerebrovascular accident [Fatal]
  - Cerebral infarction [Unknown]
  - Femur fracture [Not Recovered/Not Resolved]
  - Basal cell carcinoma [Unknown]
  - Fall [Unknown]
  - Breast cancer [Unknown]
  - Hypoacusis [Unknown]
  - Lymphoma [Unknown]
  - Chest pain [Unknown]
  - Gait disturbance [Unknown]
  - Depression [Unknown]
  - Muscle strain [Recovering/Resolving]
  - Bursitis [Unknown]
  - Dizziness postural [Unknown]
  - Urge incontinence [Unknown]
  - Rotator cuff syndrome [Recovered/Resolved]
  - Skin lesion [Unknown]
  - Bronchitis [Unknown]
  - Periarthritis [Recovered/Resolved]
  - Muscle strain [Recovered/Resolved]
  - Adverse event [Unknown]
  - Oedema peripheral [Unknown]
  - Abscess neck [Recovering/Resolving]
  - Laryngitis [Unknown]
  - Seborrhoeic keratosis [Unknown]
  - Anxiety [Unknown]
  - Upper respiratory tract infection [Unknown]
  - Headache [Unknown]
  - Oedema [Unknown]
  - Grief reaction [Recovered/Resolved]
  - Stress urinary incontinence [Unknown]
  - Constipation [Recovered/Resolved with Sequelae]
  - Face oedema [Unknown]
  - Diplopia [Not Recovered/Not Resolved]
  - Transient ischaemic attack [Unknown]
  - Epistaxis [Unknown]
  - Paraesthesia [Recovered/Resolved]
  - Osteopenia [Recovering/Resolving]
  - Ventricular extrasystoles [Unknown]
  - Rotator cuff syndrome [Not Recovered/Not Resolved]
  - Dermatitis [Unknown]
  - Ecchymosis [Unknown]
  - Gastrooesophageal reflux disease [Recovered/Resolved]
  - Urticaria [Recovering/Resolving]
  - Pneumonia [Unknown]
  - Chronic obstructive pulmonary disease [Not Recovered/Not Resolved]
  - Spinal compression fracture [Unknown]
  - Osteoarthritis [Not Recovered/Not Resolved]
  - Early satiety [Recovered/Resolved]
  - Tracheobronchitis [Unknown]
  - Osteoarthritis [Not Recovered/Not Resolved]
  - Oedema peripheral [Unknown]
  - Limb discomfort [Not Recovered/Not Resolved]
  - Arthropod bite [Unknown]
  - Benign neoplasm of skin [Unknown]
  - Avulsion fracture [Unknown]
  - Cystitis [Unknown]
  - Transient ischaemic attack [Unknown]
  - Exostosis [Unknown]
  - Transient ischaemic attack [Unknown]
  - Fracture nonunion [Not Recovered/Not Resolved]
  - Venous insufficiency [Unknown]
  - Carotid artery occlusion [Unknown]
  - Carotid artery stenosis [Unknown]
  - Hypokalaemia [Unknown]
  - Anaemia postoperative [Unknown]
  - Muscle strain [Recovered/Resolved]
  - Pain in extremity [Unknown]
  - Lacunar infarction [Unknown]
  - Breast mass [Unknown]
  - Pneumonia [Not Recovered/Not Resolved]
  - Cardiomegaly [Not Recovered/Not Resolved]
  - Cardiac failure congestive [Unknown]
  - Muscular weakness [Unknown]
  - Confusional state [Unknown]
